FAERS Safety Report 25675636 (Version 1)
Quarter: 2025Q3

REPORT INFORMATION
  Report Type: Spontaneous
  Country: US (occurrence: None)
  Receive Date: 20250812
  Receipt Date: 20250812
  Transmission Date: 20251020
  Serious: Yes (unspecified)
  Sender: FDA-CTU
  Company Number: None

PATIENT
  Age: 58 Year
  Sex: Female
  Weight: 85.05 kg

DRUGS (2)
  1. BIOFREEZE COOL THE PAIN [Suspect]
     Active Substance: MENTHOL
     Indication: Muscle strain
     Route: 061
     Dates: start: 20250809, end: 20250809
  2. UNSPECIFIED INGREDIENT [Concomitant]
     Active Substance: UNSPECIFIED INGREDIENT

REACTIONS (4)
  - Application site vesicles [None]
  - Application site burn [None]
  - Burns first degree [None]
  - Product label confusion [None]

NARRATIVE: CASE EVENT DATE: 20250809
